FAERS Safety Report 22390536 (Version 2)
Quarter: 2023Q2

REPORT INFORMATION
  Report Type: Spontaneous
  Country: US (occurrence: US)
  Receive Date: 20230531
  Receipt Date: 20230606
  Transmission Date: 20230722
  Serious: No
  Sender: FDA-Public Use
  Company Number: US-AMGEN-USASP2023093296

PATIENT
  Age: 56 Year
  Sex: Female

DRUGS (1)
  1. REPATHA [Suspect]
     Active Substance: EVOLOCUMAB
     Indication: Hyperlipidaemia
     Dosage: UNK UNK, Q2WK
     Route: 058

REACTIONS (7)
  - Upper respiratory tract infection [Unknown]
  - Asthma [Unknown]
  - Back pain [Unknown]
  - Musculoskeletal pain [Unknown]
  - Sinusitis [Unknown]
  - Laboratory test abnormal [Unknown]
  - Intentional dose omission [Unknown]

NARRATIVE: CASE EVENT DATE: 20221201
